FAERS Safety Report 6599562-8 (Version None)
Quarter: 2010Q1

REPORT INFORMATION
  Report Type: 
  Country: None (occurrence: None)
  Receive Date: 20100224
  Receipt Date: 20100212
  Transmission Date: 20100710
  Serious: Yes (Other)
  Sender: FDA-Public Use
  Company Number: FI-ELI_LILLY_AND_COMPANY-FI200912000763

PATIENT
  Age: 44 Year
  Sex: Male

DRUGS (7)
  1. ZYPADHERA [Suspect]
     Indication: SCHIZOPHRENIA
     Dosage: 300 MG, UNK
     Route: 030
     Dates: start: 20091104
  2. ZYPREXA [Suspect]
     Indication: SCHIZOPHRENIA
     Dosage: UNK, UNK
     Route: 048
     Dates: start: 19990101, end: 20060101
  3. ZYPREXA [Suspect]
     Dosage: 30 MG, DAILY (1/D)
     Route: 048
     Dates: start: 20060101, end: 20091103
  4. TENOX [Concomitant]
     Dosage: 20 MG, AS NEEDED
     Dates: start: 20000101
  5. DIAPAM [Concomitant]
     Dosage: 10 MG, AS NEEDED
     Dates: start: 20050101
  6. ALCOHOL [Concomitant]
  7. ANTABUSE [Concomitant]
     Indication: ALCOHOL USE
     Dates: end: 20090101

REACTIONS (9)
  - AGGRESSION [None]
  - DIZZINESS POSTURAL [None]
  - FATIGUE [None]
  - FEELING DRUNK [None]
  - HYPERSOMNIA [None]
  - POST PROCEDURAL COMPLICATION [None]
  - SOMNOLENCE [None]
  - SPEECH DISORDER [None]
  - TREATMENT NONCOMPLIANCE [None]
